FAERS Safety Report 7379874-0 (Version None)
Quarter: 2011Q1

REPORT INFORMATION
  Report Type: 
  Country: None (occurrence: None)
  Receive Date: 20110329
  Receipt Date: 20110321
  Transmission Date: 20110831
  Serious: Yes (Other)
  Sender: FDA-Public Use
  Company Number: FR-AMGEN-FRASP2011005628

PATIENT
  Age: 72 Year
  Sex: Female

DRUGS (3)
  1. ENBREL [Suspect]
     Indication: RHEUMATOID ARTHRITIS
     Dosage: 50 MG, WEEKLY
     Route: 058
     Dates: start: 20050101
  2. CORTANCYL [Concomitant]
     Indication: RHEUMATOID ARTHRITIS
     Dosage: 7.5 MG, 1X/DAY
     Dates: start: 20050101
  3. METHOTREXATE [Concomitant]
     Dosage: UNK

REACTIONS (10)
  - PROGRESSIVE MULTIFOCAL LEUKOENCEPHALOPATHY [None]
  - DISORIENTATION [None]
  - GENERAL PHYSICAL HEALTH DETERIORATION [None]
  - CEREBROVASCULAR DISORDER [None]
  - ANTEROGRADE AMNESIA [None]
  - APATHY [None]
  - FRONTOTEMPORAL DEMENTIA [None]
  - WEIGHT DECREASED [None]
  - HYPERSOMNIA [None]
  - DELUSION [None]
